FAERS Safety Report 6030855-9 (Version None)
Quarter: 2009Q1

REPORT INFORMATION
  Report Type: 
  Country: None (occurrence: None)
  Receive Date: 20090107
  Receipt Date: 20081217
  Transmission Date: 20090719
  Serious: Yes (Other)
  Sender: FDA-Public Use
  Company Number: JP-ABBOTT-09P-087-0495850-00

PATIENT
  Age: 2 Year
  Sex: Male
  Weight: 12 kg

DRUGS (4)
  1. CLARITH DRY SYRUP [Suspect]
     Indication: NASOPHARYNGITIS
     Route: 048
     Dates: start: 20081125, end: 20081126
  2. LACTOMIN [Concomitant]
     Indication: PROPHYLAXIS AGAINST DIARRHOEA
     Route: 048
     Dates: start: 20081125, end: 20081126
  3. L-CARBOCISTEINE [Concomitant]
     Indication: NASOPHARYNGITIS
     Route: 048
     Dates: start: 20081125, end: 20081201
  4. MEQUITAZINE [Concomitant]
     Indication: NASOPHARYNGITIS
     Route: 048
     Dates: start: 20081125, end: 20081201

REACTIONS (4)
  - DEPRESSED LEVEL OF CONSCIOUSNESS [None]
  - DROOLING [None]
  - EYE ROLLING [None]
  - UNRESPONSIVE TO STIMULI [None]
